FAERS Safety Report 9448929 (Version 1)
Quarter: 2013Q3

REPORT INFORMATION
  Report Type: Spontaneous
  Country: US (occurrence: US)
  Receive Date: 20130808
  Receipt Date: 20130808
  Transmission Date: 20140515
  Serious: No
  Sender: FDA-Public Use
  Company Number: US-MYLANLABS-2013S1013632

PATIENT
  Sex: Male

DRUGS (1)
  1. FENOFIBRATE CAPSULES USP (MICRONIZED) [Suspect]
     Indication: BLOOD CHOLESTEROL INCREASED
     Route: 048
     Dates: start: 201305

REACTIONS (1)
  - Flushing [Not Recovered/Not Resolved]
